FAERS Safety Report 20072111 (Version 1)
Quarter: 2021Q4

REPORT INFORMATION
  Report Type: Spontaneous
  Country: FR (occurrence: FR)
  Receive Date: 20211116
  Receipt Date: 20211116
  Transmission Date: 20220303
  Serious: Yes (Hospitalization, Congenital Anomaly, Other)
  Sender: FDA-Public Use
  Company Number: FR-ABBVIE-21K-056-4158809-00

PATIENT
  Sex: Male

DRUGS (1)
  1. VALPROATE SODIUM [Suspect]
     Active Substance: VALPROATE SODIUM
     Indication: Maternal exposure timing unspecified
     Route: 064

REACTIONS (72)
  - Respiratory distress [Unknown]
  - Bronchopulmonary disease [Unknown]
  - Inguinal hernia [Unknown]
  - Dyspepsia [Unknown]
  - Retinopathy [Unknown]
  - Myoclonic epilepsy [Unknown]
  - Seizure [Unknown]
  - Hypotonia [Unknown]
  - Hypertonia [Unknown]
  - Seizure [Unknown]
  - Pyrexia [Unknown]
  - Talipes [Unknown]
  - Epilepsy [Unknown]
  - Intellectual disability [Unknown]
  - Hyperkinesia [Unknown]
  - Psychomotor skills impaired [Unknown]
  - Disturbance in attention [Unknown]
  - Epistaxis [Unknown]
  - Varicose vein [Unknown]
  - Wisdom teeth removal [Unknown]
  - Dermatosis [Unknown]
  - Skin plaque [Unknown]
  - Eczema [Unknown]
  - Foot deformity [Unknown]
  - Knee deformity [Unknown]
  - Pelvic deformity [Unknown]
  - Dysmorphism [Unknown]
  - Echolalia [Unknown]
  - Scoliosis [Unknown]
  - Anxiety [Unknown]
  - Intellectual disability [Unknown]
  - Myoclonic epilepsy [Unknown]
  - Fatigue [Unknown]
  - Eating disorder [Unknown]
  - Poor quality sleep [Unknown]
  - Hypothyroidism [Unknown]
  - Blood thyroid stimulating hormone increased [Unknown]
  - Beta haemolytic streptococcal infection [Unknown]
  - Salivary hypersecretion [Unknown]
  - Speech disorder developmental [Unknown]
  - Sleep disorder [Unknown]
  - Gastrooesophageal reflux disease [Unknown]
  - Lower respiratory tract congestion [Unknown]
  - Cognitive disorder [Unknown]
  - Inguinal hernia [Unknown]
  - Pharyngitis [Unknown]
  - Speech disorder developmental [Unknown]
  - Psychomotor hyperactivity [Unknown]
  - Disorientation [Unknown]
  - Communication disorder [Unknown]
  - Unevaluable event [Unknown]
  - Fall [Unknown]
  - Dyskinesia [Unknown]
  - Balance disorder [Unknown]
  - Communication disorder [Recovering/Resolving]
  - Speech sound disorder [Unknown]
  - Psychomotor retardation [Unknown]
  - Aggression [Unknown]
  - Disturbance in attention [Unknown]
  - Behaviour disorder [Recovering/Resolving]
  - Ventricular dyskinesia [Unknown]
  - Poor quality sleep [Unknown]
  - Arrhythmia [Unknown]
  - Tremor [Unknown]
  - Myoclonus [Unknown]
  - Pityriasis rosea [Unknown]
  - Dysmorphism [Unknown]
  - Scoliosis [Unknown]
  - Epilepsy with myoclonic-atonic seizures [Unknown]
  - Frustration tolerance decreased [Unknown]
  - Low birth weight baby [Unknown]
  - Foetal exposure during pregnancy [Unknown]

NARRATIVE: CASE EVENT DATE: 20001124
